FAERS Safety Report 12477337 (Version 2)
Quarter: 2016Q3

REPORT INFORMATION
  Report Type: Spontaneous
  Country: US (occurrence: US)
  Receive Date: 20160617
  Receipt Date: 20160915
  Transmission Date: 20161109
  Serious: No
  Sender: FDA-Public Use
  Company Number: US-ALLERGAN-1656248US

PATIENT
  Sex: Female

DRUGS (1)
  1. VIBERZI [Suspect]
     Active Substance: ELUXADOLINE
     Indication: PRODUCT USED FOR UNKNOWN INDICATION
     Dosage: 75 MG, SINGLE
     Route: 048
     Dates: start: 201604, end: 201604

REACTIONS (4)
  - Nausea [Unknown]
  - Vomiting [Unknown]
  - Chest pain [Unknown]
  - Rash [Unknown]

NARRATIVE: CASE EVENT DATE: 201604
